FAERS Safety Report 8544184 (Version 3)
Quarter: 2012Q4

REPORT INFORMATION
  Report Type: 
  Country: US (occurrence: US)
  Receive Date: 20120503
  Receipt Date: 20121115
  Transmission Date: 20130627
  Serious: Yes (Hospitalization)
  Sender: FDA-Public Use
  Company Number: US-BAYER-2012-042048

PATIENT
  Age: 20 Year
  Sex: Female
  Weight: 115.65 kg

DRUGS (11)
  1. YASMIN [Suspect]
     Indication: POLYCYSTIC OVARIAN SYNDROME
     Dosage: UNK
     Dates: start: 20030214, end: 20030831
  2. YASMIN [Suspect]
     Indication: ACNE
     Dosage: UNK
     Dates: start: 20031114, end: 20031227
  3. YASMIN [Suspect]
     Indication: UTERINE BLEEDING
  4. MOTRIN [Concomitant]
     Dosage: 800 mg, UNK
     Dates: start: 20031227
  5. METFORMIN [Concomitant]
     Indication: TYPE 2 DIABETES MELLITUS
     Dosage: UNK
     Dates: start: 20031227
  6. METFORMIN [Concomitant]
     Indication: POLYCYSTIC OVARIAN SYNDROME
  7. ALBUTEROL [Concomitant]
     Dosage: UNK
     Dates: start: 20031227
  8. ADVAIR [Concomitant]
     Dosage: UNK
     Dates: start: 20031227
  9. SYNTHROID [Concomitant]
     Indication: HYPOTHYROIDISM
  10. ATENOLOL [Concomitant]
     Indication: HYPERTENSION
  11. ATENOLOL [Concomitant]
     Indication: TACHYCARDIA

REACTIONS (20)
  - Deep vein thrombosis [None]
  - Deep vein thrombosis [None]
  - Pulmonary embolism [None]
  - Injury [None]
  - Pain [None]
  - Emotional distress [None]
  - General physical health deterioration [None]
  - Anxiety [None]
  - Pain [None]
  - Pain in extremity [None]
  - Pain in extremity [None]
  - Oedema peripheral [None]
  - Vasodilatation [None]
  - Dyspnoea [None]
  - Chest pain [None]
  - Chest discomfort [None]
  - Heart rate increased [None]
  - Hypertension [None]
  - Labile blood pressure [None]
  - Mental disorder [None]
